FAERS Safety Report 6830861-8 (Version None)
Quarter: 2010Q3

REPORT INFORMATION
  Report Type: 
  Country: None (occurrence: None)
  Receive Date: 20100709
  Receipt Date: 20100709
  Transmission Date: 20110219
  Serious: Yes (Life-Threatening, Hospitalization)
  Sender: FDA-Public Use
  Company Number: None

PATIENT
  Age: 61 Year
  Sex: Female

DRUGS (2)
  1. METHOTREXATE [Suspect]
     Indication: RHEUMATOID ARTHRITIS
     Dosage: 20 MG QWEEK IM
     Route: 030
     Dates: start: 20081128, end: 20100407
  2. ADALIMUMAB [Suspect]
     Indication: RHEUMATOID ARTHRITIS
     Dosage: 40 MG OTHER SQ
     Route: 058
     Dates: start: 20091006, end: 20100407

REACTIONS (2)
  - ACUTE RESPIRATORY DISTRESS SYNDROME [None]
  - BRONCHIOLITIS [None]
